FAERS Safety Report 16394589 (Version 1)
Quarter: 2019Q2

REPORT INFORMATION
  Report Type: Spontaneous
  Country: BR (occurrence: BR)
  Receive Date: 20190605
  Receipt Date: 20190605
  Transmission Date: 20190711
  Serious: Yes (Other)
  Sender: FDA-Public Use
  Company Number: BR-BAYER-2019-105806

PATIENT
  Age: 39 Year
  Sex: Female

DRUGS (2)
  1. MIRENA [Suspect]
     Active Substance: LEVONORGESTREL
     Dosage: 20 MCG/24HR, CONT
     Route: 015
     Dates: start: 201711
  2. MIRENA [Suspect]
     Active Substance: LEVONORGESTREL

REACTIONS (9)
  - Device issue [None]
  - Pregnancy with contraceptive device [None]
  - Abortion infected [None]
  - Haemorrhage in pregnancy [None]
  - Drug-induced liver injury [None]
  - Drug ineffective [None]
  - Hepatic enzyme abnormal [None]
  - Pyrexia [None]
  - Haemorrhage in pregnancy [None]

NARRATIVE: CASE EVENT DATE: 20190424
